FAERS Safety Report 22027427 (Version 1)
Quarter: 2023Q1

REPORT INFORMATION
  Report Type: Spontaneous
  Country: US (occurrence: None)
  Receive Date: 20230223
  Receipt Date: 20230223
  Transmission Date: 20230417
  Serious: Yes (Other)
  Sender: FDA-Public Use
  Company Number: US-ROCHE-3238786

PATIENT
  Age: 62 Year
  Sex: Female

DRUGS (13)
  1. XOLAIR [Suspect]
     Active Substance: OMALIZUMAB
     Indication: Chronic spontaneous urticaria
     Dosage: DOSE: 150 MG /ML, EVERY 4 TO 5 WEEKS
     Route: 042
     Dates: start: 201407
  2. XOLAIR [Suspect]
     Active Substance: OMALIZUMAB
     Dosage: EVERY 4 TO 5 WEEKS
     Route: 042
     Dates: start: 202201
  3. XOLAIR [Suspect]
     Active Substance: OMALIZUMAB
     Dosage: EVERY 4 TO 5 WEEKS
     Route: 042
     Dates: start: 202204
  4. XOLAIR [Suspect]
     Active Substance: OMALIZUMAB
     Dosage: EVERY 4 TO 5 WEEKS
     Route: 042
     Dates: start: 202205
  5. XOLAIR [Suspect]
     Active Substance: OMALIZUMAB
     Dosage: EVERY 4 TO 5 WEEKS
     Route: 042
     Dates: start: 202206
  6. XOLAIR [Suspect]
     Active Substance: OMALIZUMAB
     Dosage: EVERY 4 TO 5 WEEKS
     Route: 042
     Dates: start: 202208
  7. XOLAIR [Suspect]
     Active Substance: OMALIZUMAB
     Dosage: EVERY 4 TO 5 WEEKS
     Route: 042
     Dates: start: 202209
  8. XOLAIR [Suspect]
     Active Substance: OMALIZUMAB
     Dosage: EVERY 4 TO 5 WEEKS
     Route: 042
     Dates: start: 202210
  9. PULMICORT TURBUHALER [Concomitant]
     Active Substance: BUDESONIDE
  10. ALBUTEROL [Concomitant]
     Active Substance: ALBUTEROL
  11. MONTELUKAST [Concomitant]
     Active Substance: MONTELUKAST SODIUM
  12. ZYRTEC [Concomitant]
     Active Substance: CETIRIZINE HYDROCHLORIDE
  13. ASTELIN [Concomitant]
     Active Substance: AZELASTINE HYDROCHLORIDE
     Indication: Rhinitis allergic

REACTIONS (3)
  - Breast cancer [Unknown]
  - Intraductal proliferative breast lesion [Unknown]
  - Off label use [Unknown]
